FAERS Safety Report 16107114 (Version 2)
Quarter: 2023Q2

REPORT INFORMATION
  Report Type: Report from Study
  Country: US (occurrence: US)
  Receive Date: 20190322
  Receipt Date: 20230421
  Transmission Date: 20230721
  Serious: Yes (Hospitalization, Other)
  Sender: FDA-Public Use
  Company Number: US-SHIRE-US201908832

PATIENT
  Age: 38 Year
  Sex: Male

DRUGS (2)
  1. IDURSULFASE [Suspect]
     Active Substance: IDURSULFASE
     Indication: Mucopolysaccharidosis II
     Dosage: 11 INTERNATIONAL UNIT, 1/WEEK
     Route: 042
     Dates: start: 20061102
  2. IDURSULFASE [Suspect]
     Active Substance: IDURSULFASE
     Dosage: 66 INTERNATIONAL UNIT
     Route: 042
     Dates: start: 20230419

REACTIONS (2)
  - Seizure [Unknown]
  - Nasopharyngitis [Recovering/Resolving]

NARRATIVE: CASE EVENT DATE: 20190301
